FAERS Safety Report 19056593 (Version 1)
Quarter: 2021Q1

REPORT INFORMATION
  Report Type: Spontaneous
  Country: US (occurrence: US)
  Receive Date: 20210325
  Receipt Date: 20210325
  Transmission Date: 20210420
  Serious: No
  Sender: FDA-Public Use
  Company Number: None

PATIENT
  Age: 42 Year
  Sex: Female
  Weight: 103.5 kg

DRUGS (8)
  1. PAROEX [Suspect]
     Active Substance: CHLORHEXIDINE GLUCONATE
     Indication: BACTERIAL INFECTION
     Dosage: ?QUANTITY:3 TEASPOON(S);?OTHER ROUTE:MOUTHWASH RINSE AND SPIT OUT?
  2. LEMON. [Concomitant]
     Active Substance: LEMON
  3. PEPPERMINT EO [Concomitant]
  4. E.C. EO [Concomitant]
  5. NINXIA RED [Concomitant]
  6. RAVEN EO [Concomitant]
  7. THYROMIN [Concomitant]
  8. LAVENDAR HAND SANITIZER [Concomitant]
     Active Substance: ALCOHOL

REACTIONS (3)
  - Pneumonia [None]
  - Cartilage injury [None]
  - Bronchitis [None]

NARRATIVE: CASE EVENT DATE: 20190411
